FAERS Safety Report 20031192 (Version 2)
Quarter: 2022Q1

REPORT INFORMATION
  Report Type: Spontaneous
  Country: MY (occurrence: MY)
  Receive Date: 20211103
  Receipt Date: 20220302
  Transmission Date: 20220423
  Serious: Yes (Other)
  Sender: FDA-Public Use
  Company Number: MY-SA-SAC20211101001151

PATIENT
  Age: 58 Year
  Sex: Female

DRUGS (9)
  1. CAPRELSA [Suspect]
     Active Substance: VANDETANIB
     Indication: Medullary thyroid cancer
     Dosage: 300 MG
     Dates: start: 20210222
  2. CAPRELSA [Suspect]
     Active Substance: VANDETANIB
     Dosage: 300 UNK
     Dates: start: 20211101
  3. ALFACALCIDOL [Concomitant]
     Active Substance: ALFACALCIDOL
     Dosage: 1 UG, QD
     Dates: start: 2017
  4. CALCIUM CARBONATE [Concomitant]
     Active Substance: CALCIUM CARBONATE
     Dosage: 1 G, QD
     Dates: start: 2017
  5. PENCIL [AMPICILLIN SODIUM] [Concomitant]
     Dosage: 10 MG
     Dates: start: 2017
  6. L TYROSINE [Concomitant]
     Dosage: 100 UG
     Dates: start: 2017
  7. LEVOTHYROXINE SODIUM [Concomitant]
     Active Substance: LEVOTHYROXINE SODIUM
     Dosage: UNK, QD
  8. PLENDIL [Concomitant]
     Active Substance: FELODIPINE
  9. LOPERAMIDE HYDROCHLORIDE [Concomitant]
     Active Substance: LOPERAMIDE HYDROCHLORIDE
     Dosage: UNK, PRN

REACTIONS (7)
  - Nephrolithiasis [Not Recovered/Not Resolved]
  - Renal impairment [Not Recovered/Not Resolved]
  - Diarrhoea [Not Recovered/Not Resolved]
  - Lethargy [Not Recovered/Not Resolved]
  - Skin reaction [Not Recovered/Not Resolved]
  - Palmar-plantar erythrodysaesthesia syndrome [Not Recovered/Not Resolved]
  - Rash [Recovered/Resolved]

NARRATIVE: CASE EVENT DATE: 20210405
